FAERS Safety Report 6200101-1 (Version None)
Quarter: 2009Q2

REPORT INFORMATION
  Report Type: 
  Country: None (occurrence: None)
  Receive Date: 20090522
  Receipt Date: 20090515
  Transmission Date: 20091009
  Serious: Yes (Other)
  Sender: FDA-Public Use
  Company Number: PHHY2009JP17625

PATIENT
  Age: 33 Year
  Sex: Female

DRUGS (3)
  1. CYCLOSPORINE [Suspect]
     Indication: PUSTULAR PSORIASIS
     Dosage: UNK
     Route: 048
     Dates: start: 19970101
  2. STEROIDS NOS [Concomitant]
     Route: 048
  3. VITAMIN D3 [Concomitant]
     Route: 061

REACTIONS (4)
  - DISEASE RECURRENCE [None]
  - PUSTULAR PSORIASIS [None]
  - RASH [None]
  - RENAL IMPAIRMENT [None]
